FAERS Safety Report 9495090 (Version 1)
Quarter: 2013Q3

REPORT INFORMATION
  Report Type: Spontaneous
  Country: US (occurrence: US)
  Receive Date: 20130903
  Receipt Date: 20130903
  Transmission Date: 20140515
  Serious: Yes (Disabling)
  Sender: FDA-Public Use
  Company Number: US-BAYER-2013-106031

PATIENT
  Age: 39 Year
  Sex: Female
  Weight: 78.6 kg

DRUGS (5)
  1. YASMIN [Suspect]
  2. FLUOXETINE [Concomitant]
     Dosage: 10 MG, UNK
     Route: 048
  3. VICODIN [Concomitant]
  4. IBUPROFEN [Concomitant]
     Dosage: 600 MG, UNK
     Route: 048
  5. SIMVASTATIN [Concomitant]
     Dosage: 40 MG, UNK
     Route: 048

REACTIONS (1)
  - Deep vein thrombosis [Recovered/Resolved]
